FAERS Safety Report 5762369-5 (Version None)
Quarter: 2008Q2

REPORT INFORMATION
  Report Type: 
  Country: None (occurrence: None)
  Receive Date: 20080609
  Receipt Date: 20080530
  Transmission Date: 20081010
  Serious: Yes (Death, Other)
  Sender: FDA-Public Use
  Company Number: US-ROCHE-560971

PATIENT
  Age: 45 Year
  Sex: Male

DRUGS (5)
  1. VALCYTE [Suspect]
     Route: 065
  2. LASIX [Concomitant]
  3. FENTANYL TRANSDERMAL SYSTEM [Concomitant]
  4. VANCOMYCIN [Concomitant]
  5. PROZAC [Concomitant]

REACTIONS (2)
  - DEATH [None]
  - DISEASE PROGRESSION [None]
